FAERS Safety Report 7892880-2 (Version None)
Quarter: 2011Q4

REPORT INFORMATION
  Report Type: 
  Country: None (occurrence: None)
  Receive Date: 20111104
  Receipt Date: 20111102
  Transmission Date: 20120403
  Serious: Yes (Other)
  Sender: FDA-Public Use
  Company Number: US-SHIRE-ALL1-2011-04285

PATIENT
  Sex: Female
  Weight: 49.887 kg

DRUGS (1)
  1. ADDERALL XR 10 [Suspect]
     Indication: ATTENTION DEFICIT/HYPERACTIVITY DISORDER
     Dosage: 10 MG, 1X/DAY:QD
     Route: 048
     Dates: start: 20110901, end: 20111001

REACTIONS (5)
  - HYPERSENSITIVITY [None]
  - EYE DISORDER [None]
  - TREMOR [None]
  - LOSS OF CONSCIOUSNESS [None]
  - HYPERHIDROSIS [None]
